FAERS Safety Report 9171013 (Version 1)
Quarter: 2013Q1

REPORT INFORMATION
  Report Type: Not Available
  Country: CH (occurrence: CH)
  Receive Date: 20130319
  Receipt Date: 20130319
  Transmission Date: 20140127
  Serious: Yes (Hospitalization)
  Sender: FDA-Public Use
  Company Number: CH-ASTELLAS-2013EU002423

PATIENT
  Age: 9 Year
  Sex: Male

DRUGS (14)
  1. PROGRAF [Suspect]
     Dosage: 0.1 MG, BID
     Route: 065
     Dates: start: 20120930
  2. EVEROLIMUS [Suspect]
     Dosage: 0.2 MG, UID/QD
     Route: 065
     Dates: start: 20130110, end: 20130206
  3. URSOFALK [Concomitant]
     Dosage: 350 MG, BID
     Route: 065
  4. DAPSONE [Concomitant]
     Dosage: 50 MG, UID/QD
     Route: 065
     Dates: start: 20130124
  5. VALCYTE [Concomitant]
     Dosage: 450 MG, UID/QD
     Route: 065
     Dates: start: 201301
  6. VI-DE 3 [Concomitant]
     Dosage: UNK
     Route: 065
  7. NEXIUM                             /01479302/ [Concomitant]
     Dosage: 40 MG, UID/QD
     Route: 065
  8. VFEND [Concomitant]
     Dosage: 125 MG, BID
     Route: 065
     Dates: start: 201301
  9. ENALAPRIL [Concomitant]
     Dosage: 6.5 MG, BID
     Route: 065
  10. TENORMIN [Concomitant]
     Dosage: 12.5 MG, BID
     Route: 065
  11. LENOGRASTIM [Concomitant]
     Dosage: UNK
     Route: 065
  12. MEROPENEM [Concomitant]
     Dosage: 700 MG, TID
     Route: 065
     Dates: start: 20130202
  13. TEICOPLANINE MYLAN [Concomitant]
     Dosage: 270 MG, UID/QD
     Route: 065
     Dates: start: 20130202, end: 20130205
  14. FOLIC [Concomitant]
     Dosage: UNK
     Route: 065

REACTIONS (1)
  - Bone marrow failure [Not Recovered/Not Resolved]
